FAERS Safety Report 18247370 (Version 1)
Quarter: 2020Q3

REPORT INFORMATION
  Report Type: Spontaneous
  Country: CA (occurrence: CA)
  Receive Date: 20200909
  Receipt Date: 20200909
  Transmission Date: 20201103
  Serious: Yes (Hospitalization, Disabling)
  Sender: FDA-Public Use
  Company Number: CA-PFIZER INC-2020344235

PATIENT
  Age: 4 Day
  Sex: Male

DRUGS (14)
  1. BLEOMYCIN SULFATE [Suspect]
     Active Substance: BLEOMYCIN SULFATE
     Indication: CHEMOTHERAPY
     Dosage: 2.0 UNITS
     Route: 042
  2. ETOPOSIDE. [Suspect]
     Active Substance: ETOPOSIDE
     Dosage: 11 MG
     Route: 042
  3. DEXMEDETOMIDINE. [Concomitant]
     Active Substance: DEXMEDETOMIDINE
  4. CARBOPLATIN. [Suspect]
     Active Substance: CARBOPLATIN
     Indication: CHEMOTHERAPY
     Dosage: 80 MG
     Route: 042
  5. AMPICILLIN [Concomitant]
     Active Substance: AMPICILLIN
  6. CARBOPLATIN. [Suspect]
     Active Substance: CARBOPLATIN
     Dosage: 22 MG
     Route: 042
  7. DEXAMETHASONE. [Concomitant]
     Active Substance: DEXAMETHASONE
  8. MORPHINE [Concomitant]
     Active Substance: MORPHINE
  9. VANCOMYCIN [Concomitant]
     Active Substance: VANCOMYCIN
  10. ETOPOSIDE. [Suspect]
     Active Substance: ETOPOSIDE
     Indication: CHEMOTHERAPY
     Dosage: 13 MG
     Route: 042
  11. ETOPOSIDE. [Suspect]
     Active Substance: ETOPOSIDE
     Dosage: 13 MG
  12. FLUCONAZOLE. [Concomitant]
     Active Substance: FLUCONAZOLE
  13. ONDANSETRON [Concomitant]
     Active Substance: ONDANSETRON
  14. TAZOCIN [Concomitant]
     Active Substance: PIPERACILLIN SODIUM\TAZOBACTAM SODIUM

REACTIONS (8)
  - White blood cell count increased [Unknown]
  - Neutrophil count increased [Unknown]
  - Pancytopenia [Unknown]
  - Aplastic anaemia [Unknown]
  - Neutropenia [Unknown]
  - Monocyte count increased [Unknown]
  - Nausea [Unknown]
  - Thrombocytopenia [Unknown]
